FAERS Safety Report 10173438 (Version 1)
Quarter: 2014Q2

REPORT INFORMATION
  Report Type: Spontaneous
  Country: US (occurrence: US)
  Receive Date: 20140515
  Receipt Date: 20140515
  Transmission Date: 20141212
  Serious: No
  Sender: FDA-Public Use
  Company Number: US-TEVA-481460USA

PATIENT
  Age: 67 Year
  Sex: Female

DRUGS (4)
  1. PROAIR HFA [Suspect]
     Indication: ASTHMA
     Dosage: 1 PUFF
     Route: 055
  2. ALBUTEROL SULFATE W/IPRATROPIUM BROMIDE [Concomitant]
     Indication: ASTHMA
     Dosage: 5 MG/3 MG
  3. FLOVENT [Concomitant]
     Indication: ASTHMA
     Dosage: 1 PUFF
  4. SINGULAIR [Concomitant]
     Dosage: 10 MILLIGRAM DAILY;

REACTIONS (7)
  - Drug effect decreased [Recovered/Resolved]
  - Bronchitis [Recovered/Resolved]
  - Cough [Recovered/Resolved]
  - Wheezing [Recovered/Resolved]
  - Chest discomfort [Not Recovered/Not Resolved]
  - Speech disorder [Recovered/Resolved]
  - Insomnia [Recovered/Resolved]
